FAERS Safety Report 17711522 (Version 1)
Quarter: 2020Q2

REPORT INFORMATION
  Report Type: Spontaneous
  Country: US (occurrence: US)
  Receive Date: 20200425
  Receipt Date: 20200425
  Transmission Date: 20200714
  Serious: No
  Sender: FDA-Public Use
  Company Number: None

PATIENT
  Age: 62 Year
  Sex: Male
  Weight: 126 kg

DRUGS (1)
  1. BUPRENORPHINE. [Suspect]
     Active Substance: BUPRENORPHINE
     Indication: BACK PAIN

REACTIONS (6)
  - Product adhesion issue [None]
  - Product substitution issue [None]
  - Withdrawal syndrome [None]
  - Drug delivery system issue [None]
  - Insomnia [None]
  - Inadequate analgesia [None]

NARRATIVE: CASE EVENT DATE: 20180701
